FAERS Safety Report 5632786-2 (Version None)
Quarter: 2008Q1

REPORT INFORMATION
  Report Type: 
  Country: None (occurrence: None)
  Receive Date: 20080221
  Receipt Date: 20080214
  Transmission Date: 20080703
  Serious: Yes (Other)
  Sender: FDA-Public Use
  Company Number: US-JNJFOC-20080203817

PATIENT
  Sex: Male
  Weight: 93.44 kg

DRUGS (13)
  1. DURAGESIC-100 [Suspect]
     Indication: CHEST PAIN
     Route: 062
  2. COMBIVENT [Concomitant]
     Indication: DRUG USE FOR UNKNOWN INDICATION
     Route: 065
  3. LYRICA [Concomitant]
     Indication: PAIN
     Route: 048
  4. QVAR 40 [Concomitant]
     Indication: ASTHMA
     Dosage: 2X 80 MG  2 DOSAGES = 2 PUFFS
     Route: 055
  5. METFORMIN HCL [Concomitant]
     Indication: DIABETES MELLITUS
     Dosage: 2X 500MG
     Route: 048
  6. ASPIRIN [Concomitant]
     Indication: CARDIAC DISORDER
     Route: 048
  7. PRINIVIL [Concomitant]
     Indication: CARDIAC DISORDER
     Route: 065
  8. METOPROLOL TARTRATE [Concomitant]
     Indication: CARDIAC DISORDER
     Route: 048
  9. UROXATRAL [Concomitant]
     Indication: PROSTATIC DISORDER
     Route: 048
  10. ZOCOR [Concomitant]
     Indication: BLOOD CHOLESTEROL
     Route: 048
  11. FLONASE [Concomitant]
     Indication: DRUG USE FOR UNKNOWN INDICATION
     Dosage: 2 DOSES = 2 PUFFS
     Route: 055
  12. LIDODERM [Concomitant]
     Indication: PAIN
     Dosage: 1-3 DAILY
     Route: 062
  13. PRILOSEC [Concomitant]
     Indication: GASTRIC DISORDER
     Route: 048

REACTIONS (7)
  - ARTHRALGIA [None]
  - ARTHROPATHY [None]
  - ARTHROSCOPIC SURGERY [None]
  - DRUG ADMINISTERED AT INAPPROPRIATE SITE [None]
  - DYSPNOEA [None]
  - MEDICATION ERROR [None]
  - PAIN IN EXTREMITY [None]
